FAERS Safety Report 18840986 (Version 1)
Quarter: 2021Q1

REPORT INFORMATION
  Report Type: Report from Study
  Country: US (occurrence: US)
  Receive Date: 20210204
  Receipt Date: 20210204
  Transmission Date: 20210419
  Serious: Yes (Hospitalization)
  Sender: FDA-Public Use
  Company Number: US-SA-2021SA032481

PATIENT
  Age: 44 Year
  Sex: Female

DRUGS (1)
  1. CAPLACIZUMAB?YHDP [Suspect]
     Active Substance: CAPLACIZUMAB-YHDP
     Indication: THROMBOTIC THROMBOCYTOPENIC PURPURA
     Dosage: 11MG
     Route: 058

REACTIONS (1)
  - Injection site rash [Unknown]
